FAERS Safety Report 6555005-1 (Version None)
Quarter: 2010Q1

REPORT INFORMATION
  Report Type: 
  Country: None (occurrence: None)
  Receive Date: 20100126
  Receipt Date: 20100126
  Transmission Date: 20100710
  Serious: No
  Sender: FDA-Public Use
  Company Number: None

PATIENT
  Sex: Female

DRUGS (2)
  1. PEGASYS [Suspect]
     Indication: HEPATITIS C
     Dosage: 180 MCG/0.5 .ML WEEKLY SQ
     Route: 058
     Dates: start: 20091203, end: 20100119
  2. PEGASYS [Suspect]
     Indication: HEPATITIS C
     Dosage: 180 MCG/0.5 .ML WEEKLY SQ
     Route: 058
     Dates: start: 20091203, end: 20100119

REACTIONS (3)
  - CHEST DISCOMFORT [None]
  - DYSPNOEA [None]
  - PALPITATIONS [None]
